FAERS Safety Report 6868121-1 (Version None)
Quarter: 2010Q3

REPORT INFORMATION
  Report Type: 
  Country: None (occurrence: None)
  Receive Date: 20100722
  Receipt Date: 20080516
  Transmission Date: 20110219
  Serious: No
  Sender: FDA-Public Use
  Company Number: US-PFIZER INC-2008042679

PATIENT
  Sex: Female
  Weight: 90.9 kg

DRUGS (3)
  1. CHANTIX [Suspect]
     Indication: SMOKING CESSATION THERAPY
     Route: 048
     Dates: start: 20080427
  2. CELEXA [Interacting]
  3. LIPITOR [Concomitant]

REACTIONS (6)
  - DRUG DOSE OMISSION [None]
  - DRUG INEFFECTIVE [None]
  - DRUG INTERACTION [None]
  - DYSGEUSIA [None]
  - HEADACHE [None]
  - NAUSEA [None]
